FAERS Safety Report 5736803-0 (Version None)
Quarter: 2008Q2

REPORT INFORMATION
  Report Type: 
  Country: None (occurrence: None)
  Receive Date: 20080509
  Receipt Date: 20080429
  Transmission Date: 20081010
  Serious: Yes (Life-Threatening, Other)
  Sender: FDA-Public Use
  Company Number: 08H-163-0314228-00

PATIENT
  Age: 59 Year
  Sex: Male
  Weight: 103 kg

DRUGS (6)
  1. SUCCINYLCHOLINE CHLORIDE [Suspect]
     Indication: MUSCLE RELAXANT THERAPY
     Dosage: 200 MG, INTRAVENOUS; 40 MG, INTRAVENOUS
     Route: 042
  2. EPHEDRINE SULPHATE INJECTION (EPHEDRINE SULFATE INJECTION) (EPHEDRINE [Suspect]
     Indication: HYPOTENSION
     Dosage: 5 MG, INTRAVENOUS; 10 MG, INTRAVENOUS
     Route: 042
  3. PROPOFOL [Concomitant]
  4. MIDAZOLAM HCL [Concomitant]
  5. REMIFENTANIL (REMIFENTANIL) [Concomitant]
  6. ISOFLURANE [Concomitant]

REACTIONS (12)
  - ARTERIOSPASM CORONARY [None]
  - CARDIAC ARREST [None]
  - CORONARY ARTERY STENOSIS [None]
  - COUGH [None]
  - EJECTION FRACTION DECREASED [None]
  - ELECTROCARDIOGRAM ST SEGMENT ELEVATION [None]
  - ISCHAEMIA [None]
  - PROCEDURAL HYPOTENSION [None]
  - PULSE ABSENT [None]
  - RESPIRATORY ACIDOSIS [None]
  - SINUS BRADYCARDIA [None]
  - VENTRICULAR TACHYCARDIA [None]
